FAERS Safety Report 5316460-8 (Version None)
Quarter: 2007Q2

REPORT INFORMATION
  Report Type: 
  Country: None (occurrence: None)
  Receive Date: 20070504
  Receipt Date: 20070428
  Transmission Date: 20071010
  Serious: Yes (Hospitalization)
  Sender: FDA-Public Use
  Company Number: PHEH2007US06572

PATIENT
  Age: 35 Year
  Sex: Female

DRUGS (9)
  1. AREDIA [Suspect]
     Indication: OSTEOPOROSIS
     Dosage: UNK, Q 3 MONTHS
     Dates: end: 20070410
  2. COLCHICINE [Concomitant]
     Dosage: UNK, UNK
  3. CUPRIMINE [Concomitant]
     Dosage: UNK, UNK
  4. MIRAPEX [Concomitant]
     Dosage: UNK, UNK
  5. ESOMEPRAZOLE MAGNESIUM [Concomitant]
     Dosage: UNK, UNK
  6. PREDNISONE [Concomitant]
     Dosage: UNK, UNK
  7. NORVASC [Concomitant]
     Dosage: UNK, UNK
  8. VYTORIN [Concomitant]
     Dosage: UNK, UNK
  9. PREMARIN [Concomitant]
     Dosage: UNK, UNK

REACTIONS (3)
  - PHARYNGEAL HAEMORRHAGE [None]
  - PHARYNGOLARYNGEAL PAIN [None]
  - PNEUMONIA [None]
